FAERS Safety Report 6772348-7 (Version None)
Quarter: 2010Q2

REPORT INFORMATION
  Report Type: 
  Country: None (occurrence: None)
  Receive Date: 20100616
  Receipt Date: 20091001
  Transmission Date: 20101027
  Serious: No
  Sender: FDA-Public Use
  Company Number: US-ASTRAZENECA-2009SE17293

PATIENT
  Age: 34 Year
  Sex: Female

DRUGS (1)
  1. PULMICORT RESPULES [Suspect]
     Route: 045
     Dates: start: 20090301

REACTIONS (2)
  - NASAL DECONGESTION THERAPY [None]
  - OFF LABEL USE [None]
